FAERS Safety Report 9761327 (Version 2)
Quarter: 2013Q4

REPORT INFORMATION
  Report Type: Spontaneous
  Country: US (occurrence: None)
  Receive Date: 20131015
  Receipt Date: 20131021
  Transmission Date: 20140711
  Serious: Yes (Death, Hospitalization)
  Sender: FDA-Public Use
  Company Number: 2013-1204

PATIENT
  Age: 78 Year
  Sex: Male

DRUGS (7)
  1. KYPROLIS [Suspect]
     Indication: PLASMA CELL MYELOMA
     Route: 042
     Dates: start: 201305
  2. FAMCYCLOVIR [Concomitant]
  3. SERTRALINE (SERTRALINE) [Concomitant]
  4. PREDNISONE (PREDNISONE) [Concomitant]
  5. VITAMIN B 12 [Concomitant]
  6. ZOLPIDEM (ZOLPIDEM) [Concomitant]
  7. BABY ASPIRIN [Concomitant]

REACTIONS (16)
  - Fatigue [None]
  - Dyspnoea [None]
  - Dysphonia [None]
  - Red blood cell count decreased [None]
  - Nausea [None]
  - Decreased appetite [None]
  - Respiratory tract infection [None]
  - Productive cough [None]
  - Restless legs syndrome [None]
  - Oropharyngeal pain [None]
  - Pain [None]
  - Metastases to spine [None]
  - Spinal fracture [None]
  - Pathological fracture [None]
  - Myocardial infarction [None]
  - Cardiac murmur [None]
